FAERS Safety Report 9508913 (Version 1)
Quarter: 2013Q3

REPORT INFORMATION
  Report Type: Spontaneous
  Country: US (occurrence: US)
  Receive Date: 20130909
  Receipt Date: 20130909
  Transmission Date: 20140515
  Serious: Yes (Other)
  Sender: FDA-Public Use
  Company Number: US-BRISTOL-MYERS SQUIBB COMPANY-17452673

PATIENT
  Age: 69 Year
  Sex: Female
  Weight: 60.77 kg

DRUGS (2)
  1. ABILIFY ORAL SOLUTION [Suspect]
     Indication: ANXIETY
  2. COUMADIN [Concomitant]
     Indication: HYPERCOAGULATION

REACTIONS (3)
  - Syncope [Unknown]
  - Rectal discharge [Unknown]
  - Vision blurred [Unknown]
